FAERS Safety Report 7874923-5 (Version None)
Quarter: 2011Q4

REPORT INFORMATION
  Report Type: 
  Country: None (occurrence: None)
  Receive Date: 20111031
  Receipt Date: 20111020
  Transmission Date: 20120403
  Serious: Yes (Hospitalization)
  Sender: FDA-Public Use
  Company Number: JP-ASTRAZENECA-2011SE63308

PATIENT
  Age: 26938 Day
  Sex: Male

DRUGS (11)
  1. LOSARTAN POTASSIUM [Concomitant]
     Indication: CARDIAC FAILURE
     Route: 048
     Dates: start: 20111005
  2. LIVALO [Concomitant]
     Indication: HYPERLIPIDAEMIA
     Route: 048
     Dates: start: 20110930
  3. CARVEDILOL [Concomitant]
     Indication: CARDIAC FAILURE
     Route: 048
     Dates: start: 20111012
  4. PLACEBO [Suspect]
     Indication: ACUTE CORONARY SYNDROME
     Route: 048
     Dates: start: 20110930
  5. LANSOPRAZOLE [Concomitant]
     Indication: GASTRITIS PROPHYLAXIS
     Route: 048
     Dates: start: 20110930
  6. AMIODARONE HCL [Suspect]
     Route: 048
     Dates: start: 20111002
  7. ASPIRIN [Suspect]
     Indication: ACUTE CORONARY SYNDROME
     Route: 048
     Dates: start: 20110930
  8. ASPIRIN [Suspect]
     Route: 048
     Dates: start: 20111001
  9. SIGMART [Concomitant]
     Indication: ANGINA PECTORIS
     Route: 042
     Dates: start: 20111002
  10. PLAVIX [Suspect]
     Indication: ACUTE CORONARY SYNDROME
     Route: 048
     Dates: start: 20110930
  11. AMIODARONE HCL [Suspect]
     Indication: VENTRICULAR FIBRILLATION
     Route: 042
     Dates: start: 20110930, end: 20111004

REACTIONS (3)
  - BLOOD ALKALINE PHOSPHATASE INCREASED [None]
  - GAMMA-GLUTAMYLTRANSFERASE INCREASED [None]
  - HEPATIC FUNCTION ABNORMAL [None]
